FAERS Safety Report 6575177-2 (Version None)
Quarter: 2010Q1

REPORT INFORMATION
  Report Type: 
  Country: None (occurrence: None)
  Receive Date: 20100209
  Receipt Date: 20100128
  Transmission Date: 20100710
  Serious: Yes (Death, Other)
  Sender: FDA-Public Use
  Company Number: JP-BAYER-200912841BYL

PATIENT
  Age: 55 Year
  Sex: Male
  Weight: 73 kg

DRUGS (10)
  1. NEXAVAR [Suspect]
     Indication: HEPATIC NEOPLASM MALIGNANT
     Dosage: TOTAL DAILY DOSE: 800 MG  UNIT DOSE: 200 MG
     Route: 048
     Dates: start: 20090727, end: 20090803
  2. NEXAVAR [Suspect]
     Dosage: UNIT DOSE: 200 MG
     Route: 048
     Dates: start: 20090803, end: 20090806
  3. NEXAVAR [Suspect]
     Dosage: UNIT DOSE: 200 MG
     Route: 048
     Dates: start: 20090826, end: 20090901
  4. NEXAVAR [Suspect]
     Dosage: UNIT DOSE: 200 MG
     Route: 048
     Dates: start: 20090901, end: 20090908
  5. UREPEARL [Concomitant]
     Indication: PROPHYLAXIS
     Route: 061
  6. ZEFIX [Concomitant]
     Dosage: SINCE BEFORE ADMINISTRATION
     Route: 048
  7. HEPSERA [Concomitant]
     Dosage: SINCE BEFORE ADMINISTRATION
     Route: 048
  8. TAGAMET [Concomitant]
     Dosage: SINCE BEFORE ADMINISTRATION
     Route: 048
  9. LOXONIN [Concomitant]
     Dosage: SINCE BEFORE ADMINISTRATION
     Route: 048
  10. NOVORAPID MIX [Concomitant]
     Dosage: SINCE BEFORE ADMINISTRATION
     Route: 057

REACTIONS (4)
  - HEPATIC NEOPLASM MALIGNANT [None]
  - HYPERAMYLASAEMIA [None]
  - LIVER DISORDER [None]
  - PALMAR-PLANTAR ERYTHRODYSAESTHESIA SYNDROME [None]
